FAERS Safety Report 4743272-6 (Version None)
Quarter: 2005Q3

REPORT INFORMATION
  Report Type: 
  Country: None (occurrence: None)
  Receive Date: 20050811
  Receipt Date: 20050725
  Transmission Date: 20060218
  Serious: Yes (Hospitalization)
  Sender: FDA-Public Use
  Company Number: 2005BI012733

PATIENT
  Age: 52 Year
  Sex: Female

DRUGS (8)
  1. AVONEX [Suspect]
     Indication: MULTIPLE SCLEROSIS
     Dosage: 30 UG; QW; IM
     Route: 030
     Dates: start: 19991201
  2. AVONEX [Suspect]
     Indication: MULTIPLE SCLEROSIS
     Dosage: 30 UG; QW; IM
     Route: 030
  3. MOBIC [Concomitant]
  4. SINGULAIR [Concomitant]
  5. IRON SUPPLEMENT [Concomitant]
  6. PRILOSEC [Concomitant]
  7. PROVIGIL [Concomitant]
  8. PAXIL [Concomitant]

REACTIONS (1)
  - COLONIC POLYP [None]
